FAERS Safety Report 9675563 (Version 2)
Quarter: 2013Q4

REPORT INFORMATION
  Report Type: Spontaneous
  Country: US (occurrence: US)
  Receive Date: 20131107
  Receipt Date: 20131119
  Transmission Date: 20140711
  Serious: No
  Sender: FDA-Public Use
  Company Number: US-PFIZER INC-2013315329

PATIENT
  Age: 75 Year
  Sex: Female
  Weight: 65.7 kg

DRUGS (4)
  1. ALPRAZOLAM [Suspect]
     Indication: ANXIETY
     Dosage: 0.75 MG, 3X/DAY (TAKING THREE 0.25MG TOGETHER)
     Dates: start: 2001
  2. ALPRAZOLAM [Interacting]
     Dosage: 0.75 MG, 1X/DAY
  3. ALPRAZOLAM [Interacting]
     Dosage: 0.75 MG, 2X/DAY
  4. SERTRALINE HCL [Interacting]
     Indication: DEPRESSION
     Dosage: 25 MG, DAILY
     Dates: start: 20131027, end: 20131102

REACTIONS (4)
  - Nausea [Recovered/Resolved]
  - Tremor [Recovered/Resolved]
  - Fear [Recovered/Resolved]
  - Drug interaction [Unknown]
